FAERS Safety Report 4692501-6 (Version None)
Quarter: 2005Q2

REPORT INFORMATION
  Report Type: 
  Country: None (occurrence: None)
  Receive Date: 20050613
  Receipt Date: 20050524
  Transmission Date: 20051028
  Serious: No
  Sender: FDA-Public Use
  Company Number: 2005-01025

PATIENT
  Age: 37 Year
  Sex: Female
  Weight: 99.3 kg

DRUGS (8)
  1. VELCADE [Suspect]
     Indication: MULTIPLE MYELOMA
     Dates: start: 20040501, end: 20040901
  2. NEXIUM [Concomitant]
  3. INSULIN [Concomitant]
  4. HYDROCHLOROTHIAZIDE [Concomitant]
  5. ALDACTONE [Concomitant]
  6. NEURONTIN [Concomitant]
  7. ALLOPURINOL [Concomitant]
  8. FAMVIR [Concomitant]

REACTIONS (6)
  - ABDOMINAL DISCOMFORT [None]
  - ABDOMINAL PAIN [None]
  - ALANINE AMINOTRANSFERASE INCREASED [None]
  - ASPARTATE AMINOTRANSFERASE INCREASED [None]
  - GAMMA-GLUTAMYLTRANSFERASE INCREASED [None]
  - MUSCLE SPASMS [None]
